FAERS Safety Report 17876046 (Version 3)
Quarter: 2022Q4

REPORT INFORMATION
  Report Type: Spontaneous
  Country: US (occurrence: US)
  Receive Date: 20200609
  Receipt Date: 20221010
  Transmission Date: 20230113
  Serious: Yes (Death, Other)
  Sender: FDA-Public Use
  Company Number: US-SAARTEMIS-SAC202006050134

PATIENT
  Age: 89 Year
  Sex: Female

DRUGS (1)
  1. ZANTAC [Suspect]
     Active Substance: RANITIDINE HYDROCHLORIDE
     Indication: Dyspepsia
     Dosage: 75 MG, QD
     Dates: start: 201706, end: 201906

REACTIONS (2)
  - Pancreatic carcinoma [Fatal]
  - Gastric cancer [Fatal]

NARRATIVE: CASE EVENT DATE: 20190627
